FAERS Safety Report 8437921-9 (Version None)
Quarter: 2012Q2

REPORT INFORMATION
  Report Type: 
  Country: None (occurrence: None)
  Receive Date: 20120614
  Receipt Date: 20120517
  Transmission Date: 20120825
  Serious: No
  Sender: FDA-Public Use
  Company Number: US-AMGEN-USASP2012020437

PATIENT
  Age: 69 Year
  Sex: Female
  Weight: 60.317 kg

DRUGS (9)
  1. ASPIRIN [Concomitant]
     Dosage: 81 MG, QD
     Route: 048
  2. PROLIA [Suspect]
     Indication: OSTEOPOROSIS POSTMENOPAUSAL
     Dosage: 60 MG, Q6MO
     Route: 058
     Dates: start: 20110518
  3. MULTIVITAMIN                       /00097801/ [Concomitant]
     Dosage: UNK UNK, QD
     Route: 048
  4. VITAMIN E                          /00110501/ [Concomitant]
     Dosage: UNK UNK, QD
     Route: 048
  5. PROLIA [Suspect]
     Dosage: 60 MG, Q6MO
     Route: 058
     Dates: start: 20111114
  6. PROPRANOLOL HYDROCHLORIDE [Concomitant]
     Dosage: 40 MG, BID
     Route: 048
  7. CALCIUM VITAMIN D [Concomitant]
     Dosage: UNK UNK, BID
     Route: 048
  8. ELOCON [Concomitant]
     Dosage: 0.1 %, PRN
     Route: 061
  9. LEVOXYL [Concomitant]
     Dosage: 50 IU, QD
     Route: 048

REACTIONS (7)
  - DYSPHONIA [None]
  - TEMPOROMANDIBULAR JOINT SYNDROME [None]
  - TOOTH DISORDER [None]
  - PAIN IN JAW [None]
  - HYPOAESTHESIA ORAL [None]
  - EAR PAIN [None]
  - HEADACHE [None]
